FAERS Safety Report 7062221-1 (Version None)
Quarter: 2010Q4

REPORT INFORMATION
  Report Type: 
  Country: None (occurrence: None)
  Receive Date: 20101026
  Receipt Date: 20101022
  Transmission Date: 20110411
  Serious: Yes (Other)
  Sender: FDA-Public Use
  Company Number: US-ALLERGAN-1013373US

PATIENT
  Age: 87 Year
  Sex: Female

DRUGS (4)
  1. BOTOX [Suspect]
     Indication: TORTICOLLIS
     Dosage: 200 UNITS, SINGLE
     Dates: start: 20100501, end: 20100501
  2. BOTOX [Suspect]
     Indication: BLEPHAROSPASM
     Dosage: UNK  UNITS, SINGLE
     Dates: start: 20100901, end: 20100901
  3. LEVOTHYROXINE [Concomitant]
     Indication: HYPOTHYROIDISM
     Dosage: UNK
     Route: 048
     Dates: start: 19840101
  4. FLUVAX [Concomitant]
     Indication: PROPHYLAXIS
     Dates: start: 20100501, end: 20100501

REACTIONS (6)
  - COUGH [None]
  - DYSPHAGIA [None]
  - GAIT DISTURBANCE [None]
  - MUSCULAR WEAKNESS [None]
  - POLYMYALGIA RHEUMATICA [None]
  - THERAPEUTIC RESPONSE DECREASED [None]
